FAERS Safety Report 8340599-6 (Version None)
Quarter: 2012Q1

REPORT INFORMATION
  Report Type: 
  Country: None (occurrence: None)
  Receive Date: 20120329
  Receipt Date: 20090930
  Transmission Date: 20120608
  Serious: Yes (Other)
  Sender: FDA-Public Use
  Company Number: PHEH2009US12472

PATIENT
  Age: 83 Year
  Sex: Female

DRUGS (1)
  1. EXELON [Suspect]
     Dosage: 4.6 MG,
     Dates: start: 20090911

REACTIONS (2)
  - FALL [None]
  - DIZZINESS [None]
